FAERS Safety Report 14538976 (Version 2)
Quarter: 2018Q3

REPORT INFORMATION
  Report Type: Spontaneous
  Country: US (occurrence: US)
  Receive Date: 20180216
  Receipt Date: 20180821
  Transmission Date: 20181010
  Serious: Yes (Death, Hospitalization)
  Sender: FDA-Public Use
  Company Number: US-BAUSCH-BL-2018-004192

PATIENT
  Sex: Male

DRUGS (1)
  1. XIFAXAN [Suspect]
     Active Substance: RIFAXIMIN
     Indication: HEPATIC CIRRHOSIS
     Route: 048
     Dates: start: 201708

REACTIONS (4)
  - Multiple sclerosis [Fatal]
  - Drug ineffective [Not Recovered/Not Resolved]
  - Hepatic cirrhosis [Fatal]
  - Hospitalisation [Unknown]
